FAERS Safety Report 19325947 (Version 1)
Quarter: 2021Q2

REPORT INFORMATION
  Report Type: Report from Study
  Country: None (occurrence: US)
  Receive Date: 20210528
  Receipt Date: 20210528
  Transmission Date: 20210717
  Serious: Yes (Other)
  Sender: FDA-Public Use
  Company Number: US-ABBVIE-21K-163-3923562-00

PATIENT
  Sex: Male

DRUGS (1)
  1. HUMIRA [Suspect]
     Active Substance: ADALIMUMAB
     Indication: PRODUCT USED FOR UNKNOWN INDICATION
     Route: 058

REACTIONS (11)
  - Headache [Unknown]
  - Blood glucose abnormal [Recovering/Resolving]
  - Dizziness [Unknown]
  - Hypoaesthesia [Unknown]
  - Unevaluable event [Unknown]
  - Haemochromatosis [Unknown]
  - Fatigue [Unknown]
  - Arthralgia [Unknown]
  - Paraesthesia [Unknown]
  - Dyspnoea [Unknown]
  - Cardiac failure [Unknown]
